FAERS Safety Report 8710165 (Version 2)
Quarter: 2013Q4

REPORT INFORMATION
  Report Type: Spontaneous
  Country: US (occurrence: US)
  Receive Date: 20120806
  Receipt Date: 20131101
  Transmission Date: 20140711
  Serious: No
  Sender: FDA-Public Use
  Company Number: US-009507513-1207USA012226

PATIENT
  Age: 46 Year
  Sex: Female

DRUGS (14)
  1. PRINIVIL [Suspect]
     Route: 048
  2. NEXIUM [Suspect]
     Dosage: UNK
     Route: 048
  3. SYMBICORT [Suspect]
     Dosage: 2 DF, BID
     Route: 055
  4. CRESTOR [Suspect]
     Route: 048
  5. HYDROXYZINE [Concomitant]
  6. LEVALBUTEROL [Concomitant]
  7. MIRTAZAPINE [Concomitant]
  8. RISPERIDONE [Concomitant]
  9. HYDROCODONE [Concomitant]
  10. ACETAMINOPHEN [Concomitant]
  11. VENLAFAXINE HYDROCHLORIDE [Concomitant]
  12. COLESEVELAM HYDROCHLORIDE [Concomitant]
  13. ALPRAZOLAM [Concomitant]
  14. FENOFIBRATE [Concomitant]

REACTIONS (7)
  - Muscle spasms [Unknown]
  - Large intestine polyp [Unknown]
  - Ligament sprain [Unknown]
  - Pleurisy [Unknown]
  - Insomnia [Unknown]
  - Muscle strain [Unknown]
  - Back pain [Unknown]
